FAERS Safety Report 24174088 (Version 1)
Quarter: 2024Q3

REPORT INFORMATION
  Report Type: Spontaneous
  Country: US (occurrence: US)
  Receive Date: 20240805
  Receipt Date: 20240805
  Transmission Date: 20241017
  Serious: Yes (Death)
  Sender: PFIZER
  Company Number: US-PFIZER INC-PV202400101177

PATIENT
  Age: 66 Year
  Sex: Female

DRUGS (1)
  1. TUKYSA [Suspect]
     Active Substance: TUCATINIB
     Dosage: UNK

REACTIONS (1)
  - Death [Fatal]
